FAERS Safety Report 10634826 (Version 4)
Quarter: 2015Q2

REPORT INFORMATION
  Report Type: Spontaneous
  Country: US (occurrence: US)
  Receive Date: 20141205
  Receipt Date: 20150409
  Transmission Date: 20150821
  Serious: Yes (Other)
  Sender: FDA-Public Use
  Company Number: US-PFIZER INC-2014329753

PATIENT
  Age: 70 Year
  Sex: Female
  Weight: 54.88 kg

DRUGS (33)
  1. LORAZEPAM. [Concomitant]
     Active Substance: LORAZEPAM
     Indication: SLEEP DISORDER
     Dosage: 1 MG, DAILY (NIGHTLY)
     Route: 048
  2. KLOR-CON [Concomitant]
     Active Substance: POTASSIUM CHLORIDE
     Dosage: 20 MEQ, 2X/DAY
  3. GABAPENTIN. [Concomitant]
     Active Substance: GABAPENTIN
     Indication: JAW DISORDER
     Dosage: 300 MG, 2X/DAY (100 MG THREE IN THE MORNING AND THREE IN THE EVENING)
  4. CHAPSTICK CLASSIC ORIGINAL [Concomitant]
     Active Substance: PETROLATUM
     Dosage: UNK
  5. FENOFIBRATE. [Concomitant]
     Active Substance: FENOFIBRATE
     Indication: BLOOD CHOLESTEROL INCREASED
     Dosage: 48 MG, DAILY
     Route: 048
  6. CALCITRIOL. [Concomitant]
     Active Substance: CALCITRIOL
     Dosage: 0.25 MG, DAILY
     Route: 048
  7. FISH OIL OMEGA 3 [Concomitant]
     Dosage: 1500 MG, DAILY
  8. LANSOPRAZOLE. [Concomitant]
     Active Substance: LANSOPRAZOLE
     Indication: GASTROOESOPHAGEAL REFLUX DISEASE
  9. METOCLOPRAMIDE. [Concomitant]
     Active Substance: METOCLOPRAMIDE
     Indication: PROPHYLAXIS OF NAUSEA AND VOMITING
     Dosage: 10 MG, AS NEEDED
     Route: 048
  10. SYSTANE (HYPROMELLOSE 2910 (4000 MPA.S)) [Concomitant]
     Active Substance: HYPROMELLOSE 2910 (4000 MPA.S)
     Dosage: UNK, AS NEEDED
  11. PREDNISONE. [Concomitant]
     Active Substance: PREDNISONE
     Indication: PROPHYLAXIS AGAINST TRANSPLANT REJECTION
     Dosage: 5 MG, DAILY
     Route: 048
  12. BUPROPION [Concomitant]
     Active Substance: BUPROPION
     Indication: NERVOUS SYSTEM DISORDER
     Dosage: 150 MG, 2X/DAY
     Route: 048
  13. ATORVASTATIN [Concomitant]
     Active Substance: ATORVASTATIN
     Indication: BLOOD CHOLESTEROL INCREASED
     Dosage: 40 MG, DAILY
     Route: 048
  14. BONIVA [Concomitant]
     Active Substance: IBANDRONATE SODIUM
     Indication: BONE DISORDER
     Dosage: 1 DF, MONTHLY
  15. VFEND [Suspect]
     Active Substance: VORICONAZOLE
     Indication: LUNG TRANSPLANT
     Dosage: 200 MG, 2X/DAY
     Route: 048
     Dates: start: 20141127
  16. AZITHROMYCIN [Concomitant]
     Active Substance: AZITHROMYCIN ANHYDROUS
     Indication: ANTIBIOTIC THERAPY
     Dosage: 250MG, THRICE WEEKLY (ON MONDAY, WEDNESDAY AND FRIDAY)
     Route: 048
  17. MYFORTIC [Concomitant]
     Active Substance: MYCOPHENOLATE SODIUM
     Indication: PROPHYLAXIS AGAINST TRANSPLANT REJECTION
     Dosage: 180 MG, DAILY
     Route: 048
  18. BACTRIM [Concomitant]
     Active Substance: SULFAMETHOXAZOLE\TRIMETHOPRIM
     Indication: ANTIBIOTIC THERAPY
     Dosage: 1 DF (800/160MG), THRICE WEEKLY (ON MONDAY, WEDNESDAY AND FRIDAY)
     Route: 048
  19. LEVOTHYROXINE [Concomitant]
     Active Substance: LEVOTHYROXINE
     Indication: THYROID DISORDER
     Dosage: 0.100 MG, DAILY
     Route: 048
  20. LOSARTAN [Concomitant]
     Active Substance: LOSARTAN
     Indication: HYPERTENSION
     Dosage: 50 MG, DAILY
     Route: 048
  21. CENTRUM SILVER [Concomitant]
     Active Substance: VITAMINS
     Dosage: UNK UNK, DAILY
     Route: 048
  22. HYDROCODONE [Concomitant]
     Active Substance: HYDROCODONE
     Indication: PAIN
     Dosage: 5-500 MG,AS NEEDED
     Route: 048
  23. MAGOX [Concomitant]
     Dosage: 1 MG, 2X/DAY
  24. VITAMIN D [Concomitant]
     Active Substance: CHOLECALCIFEROL
     Dosage: UNK UNK, DAILY
     Route: 048
  25. LANSOPRAZOLE. [Concomitant]
     Active Substance: LANSOPRAZOLE
     Indication: DYSPEPSIA
     Dosage: 30 MG, DAILY
     Route: 048
  26. ACICLOVIR [Concomitant]
     Active Substance: ACYCLOVIR
     Indication: TONGUE BLISTERING
     Dosage: 400 MG, 3X/DAY
     Route: 048
  27. ZOLPIDEM [Concomitant]
     Active Substance: ZOLPIDEM\ZOLPIDEM TARTRATE
     Indication: SLEEP DISORDER
     Dosage: 10 MG, DAILY  (NIGHTLY)
     Route: 048
  28. FORTICAL D [Concomitant]
     Indication: BLOOD CALCIUM DECREASED
     Dosage: UNK, 1X/DAY (AT NIGHTTIME)
  29. IMODIUM [Concomitant]
     Active Substance: LOPERAMIDE HYDROCHLORIDE
     Indication: PROPHYLAXIS AGAINST DIARRHOEA
     Dosage: 1 DF, DAILY
  30. LISINOPRIL. [Concomitant]
     Active Substance: LISINOPRIL
     Dosage: UNK
  31. RAPAMUNE [Suspect]
     Active Substance: SIROLIMUS
     Indication: PROPHYLAXIS AGAINST TRANSPLANT REJECTION
     Dosage: 2 MG, 1X/DAY (IN THE MORNING)
  32. VITAMIN K [Concomitant]
     Active Substance: PHYTONADIONE
     Dosage: UNK UNK, DAILY
     Route: 048
  33. FUROSEMIDE. [Concomitant]
     Active Substance: FUROSEMIDE
     Indication: OEDEMA
     Dosage: 40 MG, 2X/DAY
     Route: 048

REACTIONS (22)
  - Hallucination [Not Recovered/Not Resolved]
  - Balance disorder [Not Recovered/Not Resolved]
  - Oral pain [Not Recovered/Not Resolved]
  - Facial pain [Not Recovered/Not Resolved]
  - Chapped lips [Not Recovered/Not Resolved]
  - Oropharyngeal pain [Unknown]
  - Dementia [Unknown]
  - Pain in extremity [Unknown]
  - Lymph node pain [Not Recovered/Not Resolved]
  - Stomatitis [Not Recovered/Not Resolved]
  - Pruritus [Unknown]
  - Oral disorder [Unknown]
  - Headache [Not Recovered/Not Resolved]
  - Visual impairment [Not Recovered/Not Resolved]
  - Fall [Unknown]
  - Ear pain [Not Recovered/Not Resolved]
  - Lip dry [Not Recovered/Not Resolved]
  - Nausea [Not Recovered/Not Resolved]
  - Dry mouth [Not Recovered/Not Resolved]
  - Dysarthria [Unknown]
  - Oral mucosal blistering [Not Recovered/Not Resolved]
  - Neck pain [Not Recovered/Not Resolved]

NARRATIVE: CASE EVENT DATE: 201411
